FAERS Safety Report 8796855 (Version 3)
Quarter: 2012Q4

REPORT INFORMATION
  Report Type: 
  Country: ES (occurrence: ES)
  Receive Date: 20120919
  Receipt Date: 20121024
  Transmission Date: 20130627
  Serious: Yes (Death)
  Sender: FDA-Public Use
  Company Number: ES-009507513-1209ESP005593

PATIENT
  Age: 45 Year
  Sex: Female

DRUGS (3)
  1. INTRONA [Suspect]
     Indication: MALIGNANT MELANOMA
     Dosage: 3days/week/18months
     Dates: start: 20090625, end: 201008
  2. INTRONA [Suspect]
     Dosage: 3days/week/18months
     Dates: start: 20090118, end: 20090526
  3. ACETAMINOPHEN [Concomitant]

REACTIONS (4)
  - Acute myocardial infarction [Fatal]
  - Thrombophlebitis [Recovered/Resolved]
  - Pyrexia [Unknown]
  - Poisoning [Unknown]
